FAERS Safety Report 8199400-6 (Version None)
Quarter: 2012Q1

REPORT INFORMATION
  Report Type: 
  Country: None (occurrence: None)
  Receive Date: 20120309
  Receipt Date: 20120305
  Transmission Date: 20120608
  Serious: Yes (Hospitalization, Other)
  Sender: FDA-Public Use
  Company Number: US-ABBOTT-12P-163-0901542-00

PATIENT
  Sex: Male
  Weight: 102.15 kg

DRUGS (8)
  1. HUMIRA [Suspect]
     Indication: RHEUMATOID ARTHRITIS
     Route: 058
     Dates: start: 20101022, end: 20120105
  2. METHOTREXATE [Suspect]
     Indication: RHEUMATOID ARTHRITIS
     Dosage: WEEKLY
  3. LISINOPRIL [Concomitant]
     Indication: HYPERTENSION
  4. HYDROCHLOROTHIAZIDE [Concomitant]
     Indication: HYPERTENSION
  5. LOVASTATIN [Concomitant]
     Indication: BLOOD CHOLESTEROL INCREASED
  6. GABAPENTIN [Suspect]
     Indication: NEUROPATHY PERIPHERAL
     Dates: start: 20100101, end: 20110801
  7. PREGABALIN [Concomitant]
     Indication: FIBROMYALGIA
  8. ALBUTEROL SULFATE [Concomitant]
     Indication: ASTHMA

REACTIONS (11)
  - HYPERTENSION [None]
  - HEADACHE [None]
  - CHEST PAIN [None]
  - AORTIC VALVE INCOMPETENCE [None]
  - CONFUSIONAL STATE [None]
  - PALPITATIONS [None]
  - BUNDLE BRANCH BLOCK RIGHT [None]
  - DIZZINESS [None]
  - UNEVALUABLE EVENT [None]
  - DYSPNOEA [None]
  - FATIGUE [None]
